FAERS Safety Report 12085292 (Version 1)
Quarter: 2016Q1

REPORT INFORMATION
  Report Type: Spontaneous
  Country: PT (occurrence: PT)
  Receive Date: 20160217
  Receipt Date: 20160217
  Transmission Date: 20160526
  Serious: Yes (Other)
  Sender: FDA-Public Use
  Company Number: PT-ACTAVIS-2016-03222

PATIENT
  Age: 27 Year
  Sex: Female

DRUGS (20)
  1. FUROSEMIDE. [Concomitant]
     Active Substance: FUROSEMIDE
     Indication: PRODUCT USED FOR UNKNOWN INDICATION
     Dosage: 160 MG, DAILY
     Route: 065
     Dates: start: 2012
  2. CALCIUM AND VIT D [Concomitant]
     Active Substance: CALCIUM\VITAMIN D
     Indication: PRODUCT USED FOR UNKNOWN INDICATION
     Dosage: UNK
     Route: 065
     Dates: start: 2012
  3. CYCLOPHOSPHAMIDE. [Suspect]
     Active Substance: CYCLOPHOSPHAMIDE
     Indication: LUPUS CYSTITIS
     Dosage: 750 MG, ONCE A MONTH
     Route: 065
     Dates: start: 2012
  4. RITUXIMAB [Suspect]
     Active Substance: RITUXIMAB
     Indication: LUPUS NEPHRITIS
  5. HYDROXYCHLOROQUINE [Concomitant]
     Active Substance: HYDROXYCHLOROQUINE
     Indication: SYSTEMIC LUPUS ERYTHEMATOSUS
     Dosage: 400 MG, DAILY
     Route: 065
     Dates: start: 2007
  6. METHYLPREDNISOLONE. [Concomitant]
     Active Substance: METHYLPREDNISOLONE
     Indication: LUPUS NEPHRITIS
  7. PREDNISOLONE (UNKNOWN) [Suspect]
     Active Substance: PREDNISOLONE
     Indication: LUPUS NEPHRITIS
     Dosage: 10 MG, DAILY
     Route: 065
     Dates: start: 2007
  8. PREDNISOLONE (UNKNOWN) [Suspect]
     Active Substance: PREDNISOLONE
     Indication: LUPUS CYSTITIS
     Dosage: 80 MG, DAILY
     Route: 065
     Dates: start: 2012
  9. PREDNISOLONE (UNKNOWN) [Suspect]
     Active Substance: PREDNISOLONE
     Dosage: 60 MG, DAILY
     Route: 065
     Dates: start: 2012
  10. HYDROXYCHLOROQUINE [Concomitant]
     Active Substance: HYDROXYCHLOROQUINE
     Indication: LUPUS NEPHRITIS
     Dosage: 400 MG, DAILY
     Route: 065
     Dates: start: 2012
  11. LISINOPRIL. [Concomitant]
     Active Substance: LISINOPRIL
     Indication: PRODUCT USED FOR UNKNOWN INDICATION
     Dosage: 2.5 MG, DAILY
     Route: 065
     Dates: start: 2012
  12. OMEPRAZOLE. [Concomitant]
     Active Substance: OMEPRAZOLE
     Indication: PRODUCT USED FOR UNKNOWN INDICATION
     Dosage: 20 MG, DAILY
     Route: 065
     Dates: start: 2012
  13. NYSTATINE [Concomitant]
     Indication: ORAL CANDIDIASIS
     Dosage: UNK
     Route: 065
     Dates: start: 2012
  14. MYCOPHENOLATE MOFETIL (UNKNOWN) [Suspect]
     Active Substance: MYCOPHENOLATE MOFETIL
     Indication: LUPUS CYSTITIS
     Dosage: 1.5 G, DAILY
     Route: 065
     Dates: start: 2012
  15. MYCOPHENOLATE MOFETIL (UNKNOWN) [Suspect]
     Active Substance: MYCOPHENOLATE MOFETIL
     Indication: LUPUS NEPHRITIS
  16. SULFAMETHOXAZOLE-TRIMETHOPRIM (SMZ) [Suspect]
     Active Substance: SULFAMETHOXAZOLE\TRIMETHOPRIM
     Indication: PROPHYLAXIS
     Dosage: UNK
     Route: 065
     Dates: start: 2012
  17. CYCLOPHOSPHAMIDE. [Suspect]
     Active Substance: CYCLOPHOSPHAMIDE
     Indication: LUPUS NEPHRITIS
  18. RITUXIMAB [Suspect]
     Active Substance: RITUXIMAB
     Indication: LUPUS CYSTITIS
     Dosage: 375 MG/M2, 1/WEEK
     Route: 065
     Dates: start: 2012
  19. METHYLPREDNISOLONE. [Concomitant]
     Active Substance: METHYLPREDNISOLONE
     Indication: LUPUS NEPHRITIS
     Dosage: 500 MG, UNKNOWN
     Route: 065
     Dates: start: 2012
  20. TAMSULOSIN [Concomitant]
     Active Substance: TAMSULOSIN
     Indication: PRODUCT USED FOR UNKNOWN INDICATION
     Dosage: 0.4 MG, DAILY
     Route: 065
     Dates: start: 2012

REACTIONS (6)
  - Off label use [Unknown]
  - Bone marrow toxicity [Recovered/Resolved]
  - Oral candidiasis [Unknown]
  - Febrile neutropenia [Unknown]
  - Candiduria [Unknown]
  - Chorioretinitis [Unknown]
